FAERS Safety Report 5306662-9 (Version None)
Quarter: 2007Q2

REPORT INFORMATION
  Report Type: 
  Country: None (occurrence: None)
  Receive Date: 20070424
  Receipt Date: 20070412
  Transmission Date: 20071010
  Serious: Yes (Other)
  Sender: FDA-Public Use
  Company Number: US-PFIZER INC-2007030208

PATIENT
  Sex: Female
  Weight: 77.1 kg

DRUGS (5)
  1. GEODON [Suspect]
     Indication: BIPOLAR II DISORDER
  2. LITHIUM CARBONATE [Concomitant]
  3. SYNTHROID [Concomitant]
  4. CLONAZEPAM [Concomitant]
  5. LAMICTAL [Concomitant]

REACTIONS (2)
  - ARRHYTHMIA [None]
  - ELECTROCARDIOGRAM QT PROLONGED [None]
